FAERS Safety Report 11403218 (Version 1)
Quarter: 2015Q3

REPORT INFORMATION
  Report Type: Spontaneous
  Country: US (occurrence: None)
  Receive Date: 20150820
  Receipt Date: 20150820
  Transmission Date: 20151125
  Serious: Yes (Disabling, Other)
  Sender: FDA-Public Use
  Company Number: None

PATIENT
  Age: 50 Year
  Sex: Female
  Weight: 68.04 kg

DRUGS (5)
  1. IBPROFEN [Concomitant]
  2. METHOTREXATE [Concomitant]
     Active Substance: METHOTREXATE
  3. LEUCOVORIN CALCIUM. [Concomitant]
     Active Substance: LEUCOVORIN CALCIUM
  4. NORVASC [Concomitant]
     Active Substance: AMLODIPINE BESYLATE
  5. LEVOFLOXACIN 500 MG GENERIC FOR LEVAQUIN MACLEODS [Suspect]
     Active Substance: LEVOFLOXACIN
     Indication: SINUSITIS
     Route: 048
     Dates: start: 20130115, end: 20140620

REACTIONS (2)
  - Tendonitis [None]
  - Tendon rupture [None]

NARRATIVE: CASE EVENT DATE: 20140115
